FAERS Safety Report 20112414 (Version 1)
Quarter: 2021Q4

REPORT INFORMATION
  Report Type: Other
  Country: GB (occurrence: GB)
  Receive Date: 20211125
  Receipt Date: 20211125
  Transmission Date: 20220303
  Serious: Yes (Other)
  Sender: FDA-Public Use
  Company Number: None

PATIENT

DRUGS (4)
  1. MONTELUKAST SODIUM [Suspect]
     Active Substance: MONTELUKAST SODIUM
     Indication: Asthma
     Dosage: 4 MILLIGRAM
     Route: 048
     Dates: start: 20210921, end: 20211111
  2. MELATONIN [Concomitant]
     Active Substance: MELATONIN
     Indication: Ill-defined disorder
     Dosage: UNK
     Route: 065
  3. FLUOXETINE HYDROCHLORIDE [Concomitant]
     Active Substance: FLUOXETINE HYDROCHLORIDE
     Indication: Ill-defined disorder
     Dosage: UNK
     Route: 065
  4. OMEPRAZOLE [Concomitant]
     Active Substance: OMEPRAZOLE
     Indication: Ill-defined disorder
     Dosage: UNK
     Route: 065

REACTIONS (12)
  - Adverse drug reaction [Not Recovered/Not Resolved]
  - Mental disorder [Not Recovered/Not Resolved]
  - Epilepsy [Unknown]
  - Tremor [Not Recovered/Not Resolved]
  - Hallucination [Unknown]
  - Amnesia [Unknown]
  - Fear [Unknown]
  - Abnormal behaviour [Unknown]
  - Confusional state [Unknown]
  - Depressed mood [Unknown]
  - Dizziness [Unknown]
  - Fatigue [Unknown]

NARRATIVE: CASE EVENT DATE: 20210921
